FAERS Safety Report 14378573 (Version 10)
Quarter: 2018Q3

REPORT INFORMATION
  Report Type: Report from Study
  Country: US (occurrence: US)
  Receive Date: 20180112
  Receipt Date: 20180920
  Transmission Date: 20181010
  Serious: Yes (Hospitalization, Other)
  Sender: FDA-Public Use
  Company Number: US-ROCHE-1972291

PATIENT
  Age: 66 Year
  Sex: Male
  Weight: 70.37 kg

DRUGS (32)
  1. ADVAIR HFA [Concomitant]
     Active Substance: FLUTICASONE PROPIONATE\SALMETEROL XINAFOATE
     Route: 065
  2. FLONASE [Concomitant]
     Active Substance: FLUTICASONE PROPIONATE
     Route: 065
  3. TYLENOL EXTRA STRENGTH [Concomitant]
     Active Substance: ACETAMINOPHEN
     Indication: PAIN
     Dosage: HAS BEEN TAKING FOR A FEW MONTHS
     Route: 048
  4. METAMUCIL ORANGE [Concomitant]
     Indication: CONSTIPATION
     Dosage: TAKES OCCASIONALLY, 1?2 TIMES A WEEK
     Route: 048
  5. ESBRIET [Suspect]
     Active Substance: PIRFENIDONE
     Indication: IDIOPATHIC PULMONARY FIBROSIS
     Route: 048
     Dates: start: 20170620
  6. ESBRIET [Suspect]
     Active Substance: PIRFENIDONE
     Route: 048
     Dates: start: 20150129
  7. ESTER C (UNITED STATES) [Concomitant]
     Dosage: TAKES OCCASIONALLY; HAS NOT TAKEN IN A WEEK
     Route: 048
  8. MUCINEX [Concomitant]
     Active Substance: GUAIFENESIN
  9. ESBRIET [Suspect]
     Active Substance: PIRFENIDONE
     Route: 048
     Dates: start: 20150130
  10. ESBRIET [Suspect]
     Active Substance: PIRFENIDONE
     Route: 048
     Dates: start: 20170622
  11. BISOPROLOL FUMARAT [Concomitant]
     Active Substance: BISOPROLOL FUMARATE
  12. NEXIUM [Concomitant]
     Active Substance: ESOMEPRAZOLE MAGNESIUM
     Indication: GASTROOESOPHAGEAL REFLUX DISEASE
  13. FLONASE [Concomitant]
     Active Substance: FLUTICASONE PROPIONATE
     Route: 045
  14. VITAMIN B12 [Concomitant]
     Active Substance: CYANOCOBALAMIN
     Indication: ANAEMIA
     Dosage: TAKES OCCASIONALLY?STARTED YEARS AGO
     Route: 048
  15. VITAMIN D3 [Concomitant]
     Active Substance: CHOLECALCIFEROL
  16. ALEVE [Concomitant]
     Active Substance: NAPROXEN SODIUM
     Route: 048
  17. CLARITIN EXTRA [Concomitant]
  18. ATIVAN [Concomitant]
     Active Substance: LORAZEPAM
  19. SPIRIVA [Concomitant]
     Active Substance: TIOTROPIUM BROMIDE MONOHYDRATE
     Route: 055
  20. ALBUTEROL. [Concomitant]
     Active Substance: ALBUTEROL
     Route: 055
     Dates: start: 2009
  21. IBUPROFEN. [Concomitant]
     Active Substance: IBUPROFEN
     Indication: PAIN
     Dosage: HAS BEEN TAKING ON AND OFF FOR SEVERAL YEARS
     Route: 048
  22. ESBRIET [Suspect]
     Active Substance: PIRFENIDONE
     Dosage: FOR A YEAR OR LONGER
     Route: 048
  23. NEXIUM [Concomitant]
     Active Substance: ESOMEPRAZOLE MAGNESIUM
     Indication: GASTROOESOPHAGEAL REFLUX DISEASE
     Dosage: ALTERNATES WITH OMEPRAZOLE
     Route: 048
  24. OMEPRAZOLE. [Concomitant]
     Active Substance: OMEPRAZOLE
     Indication: GASTROOESOPHAGEAL REFLUX DISEASE
  25. FLONASE [Concomitant]
     Active Substance: FLUTICASONE PROPIONATE
     Indication: HYPERSENSITIVITY
     Dosage: ONE IN MORNING AND ONE AT NIGHT
     Route: 048
     Dates: start: 2013
  26. COENZYME Q10 [Concomitant]
     Active Substance: UBIDECARENONE
     Route: 048
  27. ESBRIET [Suspect]
     Active Substance: PIRFENIDONE
     Dosage: PILLS THRICE A DAY
     Route: 048
     Dates: start: 201706
  28. SPIRIVA [Concomitant]
     Active Substance: TIOTROPIUM BROMIDE MONOHYDRATE
     Dosage: 1 PUFF ONCE A DAY, TAKING ABOUT 8 YRS
     Route: 055
     Dates: start: 2010
  29. ESBRIET [Suspect]
     Active Substance: PIRFENIDONE
     Route: 048
  30. OMEPRAZOLE. [Concomitant]
     Active Substance: OMEPRAZOLE
     Indication: GASTROOESOPHAGEAL REFLUX DISEASE
     Dosage: ALTERNATES WITH NEXIUM
     Route: 048
     Dates: start: 2016
  31. METAMUCIL ORANGE [Concomitant]
     Indication: DIVERTICULITIS
  32. PROVENTIL [Concomitant]
     Active Substance: ALBUTEROL
     Dosage: 2 PUFFS TWICE A DAY, TAKING LONGER THAN 8 YEARS
     Route: 055

REACTIONS (30)
  - Gastric disorder [Not Recovered/Not Resolved]
  - Eructation [Not Recovered/Not Resolved]
  - Depression [Not Recovered/Not Resolved]
  - Headache [Unknown]
  - Blood sodium decreased [Not Recovered/Not Resolved]
  - Asthenia [Not Recovered/Not Resolved]
  - Pseudomonas infection [Not Recovered/Not Resolved]
  - Asthenia [Recovered/Resolved with Sequelae]
  - Dyspnoea [Not Recovered/Not Resolved]
  - Pneumonia [Recovered/Resolved]
  - Fatigue [Recovered/Resolved with Sequelae]
  - Poor quality sleep [Not Recovered/Not Resolved]
  - Dizziness [Unknown]
  - Lung infection [Not Recovered/Not Resolved]
  - Productive cough [Not Recovered/Not Resolved]
  - Constipation [Not Recovered/Not Resolved]
  - Upper respiratory tract infection [Unknown]
  - Lung infection [Unknown]
  - Somnolence [Recovered/Resolved with Sequelae]
  - Anaemia [Not Recovered/Not Resolved]
  - Asthenia [Unknown]
  - Tachycardia [Not Recovered/Not Resolved]
  - Nausea [Not Recovered/Not Resolved]
  - Pneumonia [Not Recovered/Not Resolved]
  - Nausea [Not Recovered/Not Resolved]
  - Productive cough [Not Recovered/Not Resolved]
  - Arthritis [Not Recovered/Not Resolved]
  - Pyrexia [Recovered/Resolved]
  - Dyspnoea [Unknown]
  - Fatigue [Not Recovered/Not Resolved]

NARRATIVE: CASE EVENT DATE: 20150129
